FAERS Safety Report 15710232 (Version 3)
Quarter: 2019Q1

REPORT INFORMATION
  Report Type: Not Available
  Country: US (occurrence: US)
  Receive Date: 20181211
  Receipt Date: 20190226
  Transmission Date: 20190417
  Serious: No
  Sender: FDA-Public Use
  Company Number: US-NEUROCRINE BIOSCIENCES INC.-2018NBI03444

PATIENT
  Sex: Female

DRUGS (11)
  1. INGREZZA [Suspect]
     Active Substance: VALBENAZINE
     Indication: TARDIVE DYSKINESIA
     Route: 048
     Dates: start: 20181017
  2. ARICEPT [Concomitant]
     Active Substance: DONEPEZIL HYDROCHLORIDE
     Route: 048
  3. SYNTHROID [Concomitant]
     Active Substance: LEVOTHYROXINE SODIUM
     Route: 048
  4. LIPITOR [Concomitant]
     Active Substance: ATORVASTATIN CALCIUM
     Indication: BLOOD CHOLESTEROL
     Route: 048
  5. ZOLOFT [Concomitant]
     Active Substance: SERTRALINE HYDROCHLORIDE
     Indication: PARANOIA
     Route: 048
  6. ASPIRIN. [Concomitant]
     Active Substance: ASPIRIN
     Indication: THROMBOSIS
     Route: 048
  7. PLAVIX [Concomitant]
     Active Substance: CLOPIDOGREL BISULFATE
     Route: 048
     Dates: end: 201902
  8. RANEXA [Concomitant]
     Active Substance: RANOLAZINE
     Route: 048
  9. KLONOPIN [Concomitant]
     Active Substance: CLONAZEPAM
     Indication: SLEEP DISORDER
     Route: 048
  10. ARISTADA [Concomitant]
     Active Substance: ARIPIPRAZOLE LAUROXIL
     Indication: DEPRESSION
     Dosage: ONCE EVERY 28 DAYS
  11. ARISTADA [Concomitant]
     Active Substance: ARIPIPRAZOLE LAUROXIL
     Indication: ANXIETY

REACTIONS (5)
  - Hypotonia [Unknown]
  - Palpitations [Unknown]
  - Lethargy [Unknown]
  - Fatigue [Unknown]
  - Somnolence [Unknown]

NARRATIVE: CASE EVENT DATE: 2018
